FAERS Safety Report 9323823 (Version 1)
Quarter: 2013Q2

REPORT INFORMATION
  Report Type: Spontaneous
  Country: US (occurrence: None)
  Receive Date: 20130529
  Receipt Date: 20130529
  Transmission Date: 20140414
  Serious: Yes (Congenital Anomaly)
  Sender: FDA-Public Use
  Company Number: 221651

PATIENT
  Sex: 0

DRUGS (2)
  1. DAIVOBET [Suspect]
     Indication: FOETAL EXPOSURE DURING PREGNANCY
  2. USTEKINUMAB [Suspect]
     Indication: PRODUCT USED FOR UNKNOWN INDICATION
     Route: 058
     Dates: start: 201001, end: 201111

REACTIONS (4)
  - Maternal drugs affecting foetus [None]
  - Caesarean section [None]
  - Vomiting neonatal [None]
  - Neonatal disorder [None]
